FAERS Safety Report 7596952-1 (Version None)
Quarter: 2011Q3

REPORT INFORMATION
  Report Type: 
  Country: None (occurrence: None)
  Receive Date: 20110708
  Receipt Date: 20110629
  Transmission Date: 20111222
  Serious: Yes (Hospitalization)
  Sender: FDA-Public Use
  Company Number: AU-JNJFOC-20110700814

PATIENT
  Sex: Female

DRUGS (3)
  1. SIMPONI [Suspect]
     Route: 058
     Dates: start: 20101207
  2. SIMPONI [Suspect]
     Indication: RHEUMATOID ARTHRITIS
     Route: 058
     Dates: end: 20110408
  3. MAGNESIUM [Concomitant]
     Indication: MAGNESIUM DEFICIENCY

REACTIONS (5)
  - DIZZINESS [None]
  - INFECTION [None]
  - PALPITATIONS [None]
  - KNEE ARTHROPLASTY [None]
  - BLOOD MAGNESIUM DECREASED [None]
